FAERS Safety Report 6165667-9 (Version None)
Quarter: 2009Q2

REPORT INFORMATION
  Report Type: 
  Country: None (occurrence: None)
  Receive Date: 20090423
  Receipt Date: 20090416
  Transmission Date: 20091009
  Serious: Yes (Other)
  Sender: FDA-Public Use
  Company Number: FR-SANOFI-SYNTHELABO-A02200900890

PATIENT
  Sex: Male

DRUGS (1)
  1. PLAVIX [Suspect]
     Indication: FEMORAL ARTERIAL STENOSIS
     Route: 048
     Dates: start: 20060512

REACTIONS (1)
  - ARTERIAL STENOSIS LIMB [None]
